FAERS Safety Report 4459324-4 (Version None)
Quarter: 2004Q3

REPORT INFORMATION
  Report Type: 
  Country: None (occurrence: None)
  Receive Date: 20040927
  Receipt Date: 20020807
  Transmission Date: 20050211
  Serious: Yes (Life-Threatening, Hospitalization)
  Sender: FDA-Public Use
  Company Number: JP-MERCK-0208USA02070

PATIENT
  Age: 12 Year
  Sex: Female
  Weight: 32 kg

DRUGS (9)
  1. FOSAMAX [Suspect]
     Indication: OSTEOPOROSIS
     Route: 048
     Dates: start: 20020617, end: 20020630
  2. FOSAMAX [Suspect]
     Route: 048
     Dates: start: 20020701, end: 20020726
  3. ALFACALCIDOL [Concomitant]
     Indication: OSTEOPOROSIS
     Route: 065
     Dates: start: 20000107, end: 20020616
  4. GLYCYRON [Concomitant]
     Route: 048
     Dates: start: 20000107, end: 20020730
  5. IBUPROFEN [Concomitant]
     Indication: JUVENILE ARTHRITIS
     Route: 065
     Dates: start: 20000107, end: 20020730
  6. MIZORIBINE [Concomitant]
     Indication: JUVENILE ARTHRITIS
     Route: 065
     Dates: start: 20000107, end: 20020730
  7. PREDNISOLONE [Concomitant]
     Indication: JUVENILE ARTHRITIS
     Route: 065
     Dates: start: 20020127, end: 20020610
  8. PREDNISOLONE [Concomitant]
     Route: 065
     Dates: start: 20020611, end: 20020730
  9. PREDNISOLONE [Concomitant]
     Route: 065
     Dates: start: 20011019, end: 20020126

REACTIONS (1)
  - HEPATITIS ACUTE [None]
